FAERS Safety Report 22293382 (Version 1)
Quarter: 2023Q2

REPORT INFORMATION
  Report Type: Spontaneous
  Country: US (occurrence: US)
  Receive Date: 20230508
  Receipt Date: 20230508
  Transmission Date: 20230721
  Serious: No
  Sender: FDA-Public Use
  Company Number: US-BAYER-2023A058069

PATIENT

DRUGS (2)
  1. MIRALAX [Suspect]
     Active Substance: POLYETHYLENE GLYCOL 3350
     Indication: Gastrointestinal disorder
     Dosage: A TEASPOON OF MIRALAX 3 TIMES A DAY
     Route: 048
  2. METAMUCIL [Suspect]
     Active Substance: PLANTAGO SEED

REACTIONS (1)
  - Extra dose administered [None]
